FAERS Safety Report 5804834-8 (Version None)
Quarter: 2008Q3

REPORT INFORMATION
  Report Type: 
  Country: None (occurrence: None)
  Receive Date: 20080709
  Receipt Date: 20080701
  Transmission Date: 20090109
  Serious: Yes (Other)
  Sender: FDA-Public Use
  Company Number: SE-ALLERGAN-0808044US

PATIENT
  Age: 54 Year
  Sex: Male

DRUGS (1)
  1. GANFORT [Suspect]
     Indication: GLAUCOMA
     Route: 047

REACTIONS (1)
  - MACULAR OEDEMA [None]
